FAERS Safety Report 9802018 (Version 2)
Quarter: 2014Q1

REPORT INFORMATION
  Report Type: Report from Study
  Country: US (occurrence: US)
  Receive Date: 20140107
  Receipt Date: 20140107
  Transmission Date: 20141002
  Serious: Yes (Hospitalization)
  Sender: FDA-Public Use
  Company Number: PHEH2013US024635

PATIENT
  Age: 86 Year
  Sex: Male

DRUGS (5)
  1. EXELON PATCH [Suspect]
     Indication: DEMENTIA ALZHEIMER^S TYPE
     Dosage: 4.6 MG, DAILY
     Route: 062
     Dates: start: 20130103
  2. EXELON PATCH [Suspect]
     Dosage: 9.5 MG, DAILY
     Route: 062
  3. EXELON PATCH [Suspect]
     Dosage: 4.6 MG, DAILY
     Route: 062
  4. ARICEPT [Suspect]
     Dosage: UNK UKN, UNK
  5. NAMENDA [Suspect]
     Dosage: UNK UKN, UNK

REACTIONS (8)
  - Cerebral haemorrhage [Unknown]
  - Laceration [Unknown]
  - Haemoglobin decreased [Recovered/Resolved]
  - Fall [Unknown]
  - Agitation [Unknown]
  - Insomnia [Unknown]
  - Drug prescribing error [Unknown]
  - Inappropriate schedule of drug administration [Recovered/Resolved]
